FAERS Safety Report 11078466 (Version 2)
Quarter: 2015Q2

REPORT INFORMATION
  Report Type: Spontaneous
  Country: US (occurrence: US)
  Receive Date: 20150430
  Receipt Date: 20150515
  Transmission Date: 20150821
  Serious: Yes (Death)
  Sender: FDA-Public Use
  Company Number: US-AMGEN-USASP2015040868

PATIENT
  Age: 74 Year
  Sex: Female
  Weight: 58.5 kg

DRUGS (3)
  1. PROLIA [Suspect]
     Active Substance: DENOSUMAB
     Indication: OSTEOPOROSIS
     Dosage: 60 MG, Q6MO
     Route: 058
     Dates: start: 20141111
  2. LOVASTATIN. [Concomitant]
     Active Substance: LOVASTATIN
     Indication: HYPERLIPIDAEMIA
     Dosage: 40 MG, QD
     Route: 048
     Dates: start: 20130301
  3. CARBAMAZEPINE. [Concomitant]
     Active Substance: CARBAMAZEPINE
     Indication: SEIZURE
     Dosage: 200 MG, BID
     Route: 048
     Dates: start: 20121126

REACTIONS (4)
  - Fall [Unknown]
  - Gait disturbance [Unknown]
  - Cardio-respiratory arrest [Fatal]
  - Syncope [Unknown]

NARRATIVE: CASE EVENT DATE: 20150123
